FAERS Safety Report 6211402-5 (Version None)
Quarter: 2009Q2

REPORT INFORMATION
  Report Type: 
  Country: None (occurrence: None)
  Receive Date: 20090522
  Receipt Date: 20090303
  Transmission Date: 20091009
  Serious: No
  Sender: FDA-Public Use
  Company Number: 8040220

PATIENT
  Sex: Male
  Weight: 82.7 kg

DRUGS (3)
  1. CIMZIA [Suspect]
  2. FLAGYL [Concomitant]
  3. CIPRO [Concomitant]

REACTIONS (3)
  - ANTINUCLEAR ANTIBODY [None]
  - ARTHRALGIA [None]
  - RASH MACULAR [None]
